FAERS Safety Report 6726608-6 (Version None)
Quarter: 2010Q2

REPORT INFORMATION
  Report Type: 
  Country: None (occurrence: None)
  Receive Date: 20100514
  Receipt Date: 20100511
  Transmission Date: 20101027
  Serious: Yes (Other)
  Sender: FDA-Public Use
  Company Number: US-RB-002255-10

PATIENT
  Age: 43 Year
  Sex: Male

DRUGS (5)
  1. SUBOXONE [Suspect]
     Dosage: TOOK VARIED DOSES
     Route: 060
     Dates: start: 20100201, end: 20100329
  2. ABILIFY [Suspect]
     Indication: DRUG USE FOR UNKNOWN INDICATION
     Dosage: UNKNOWN DOSING DETAILS
     Route: 065
  3. ^PSYCH^ MEDS [Concomitant]
  4. HEROIN [Suspect]
     Dosage: UNKNOWN DOSING DETAILS
     Route: 065
     Dates: start: 20100401
  5. PERCOCET [Suspect]
     Indication: PAIN
     Dosage: UNKNOWN DOSING DETAILS
     Route: 048
     Dates: start: 20100301

REACTIONS (17)
  - ABDOMINAL PAIN UPPER [None]
  - ANGER [None]
  - ANXIETY [None]
  - BACK PAIN [None]
  - DRUG DEPENDENCE [None]
  - EUPHORIC MOOD [None]
  - FATIGUE [None]
  - HALLUCINATIONS, MIXED [None]
  - INSOMNIA [None]
  - NAUSEA [None]
  - NERVE COMPRESSION [None]
  - NIGHTMARE [None]
  - PARANOIA [None]
  - PRURITUS [None]
  - SCOLIOSIS [None]
  - SOMNOLENCE [None]
  - VOMITING [None]
